APPROVED DRUG PRODUCT: TRIPROLIDINE HYDROCHLORIDE
Active Ingredient: TRIPROLIDINE HYDROCHLORIDE
Strength: 2.5MG
Dosage Form/Route: TABLET;ORAL
Application: A085610 | Product #001
Applicant: VITARINE PHARMACEUTICALS INC
Approved: Approved Prior to Jan 1, 1982 | RLD: No | RS: No | Type: DISCN